FAERS Safety Report 8814865 (Version 2)
Quarter: 2012Q4

REPORT INFORMATION
  Report Type: 
  Country: RU (occurrence: RU)
  Receive Date: 20120928
  Receipt Date: 20121015
  Transmission Date: 20130627
  Serious: Yes (Other)
  Sender: FDA-Public Use
  Company Number: RU-PFIZER INC-2012235982

PATIENT
  Age: 73 Year
  Sex: Male
  Weight: 78 kg

DRUGS (10)
  1. TYGACIL [Suspect]
     Indication: PNEUMONIA
     Dosage: 100 mg, 2x/day
     Route: 042
     Dates: start: 20111125, end: 20111204
  2. TYGACIL [Suspect]
     Indication: SEPSIS
  3. ZYVOX [Suspect]
     Indication: PNEUMONIA
     Dosage: 600 mg, 2x/day
     Route: 042
     Dates: start: 20111205
  4. ZYVOX [Suspect]
     Indication: SEPSIS
  5. FORTUM [Concomitant]
     Indication: PNEUMONIA
     Dosage: 1 g, 3x/day
     Dates: start: 20111109, end: 20111114
  6. FORTUM [Concomitant]
     Indication: SEPSIS
  7. MERONEM [Concomitant]
     Indication: PNEUMONIA
     Dosage: 1 g, 4x/day
     Dates: start: 20111115, end: 20111124
  8. MERONEM [Concomitant]
     Indication: SEPSIS
     Dosage: 1 g, 4x/day
     Dates: start: 20111205
  9. CIPROFLOXACIN [Concomitant]
     Indication: PNEUMONIA
     Dosage: 0.2 g, 4x/day
     Dates: start: 20111118, end: 20111124
  10. CIPROFLOXACIN [Concomitant]
     Indication: SEPSIS

REACTIONS (1)
  - Drug ineffective [Unknown]
